FAERS Safety Report 7034146-9 (Version None)
Quarter: 2010Q4

REPORT INFORMATION
  Report Type: 
  Country: None (occurrence: None)
  Receive Date: 20101008
  Receipt Date: 20100927
  Transmission Date: 20110411
  Serious: Yes (Other)
  Sender: FDA-Public Use
  Company Number: GXKR2010AR10895

PATIENT
  Sex: Male

DRUGS (3)
  1. LEVETIRACETAM (NGX) [Suspect]
     Indication: CONVULSION
     Dosage: 1000 MG/DAY
     Route: 065
  2. CLOBAZAM [Concomitant]
     Indication: CONVULSION
     Route: 065
  3. TOPIRAMATE [Concomitant]
     Indication: CONVULSION
     Route: 065

REACTIONS (3)
  - COMPLEX PARTIAL SEIZURES [None]
  - ELECTROENCEPHALOGRAM ABNORMAL [None]
  - MYOCLONUS [None]
